FAERS Safety Report 9891904 (Version 1)
Quarter: 2014Q1

REPORT INFORMATION
  Report Type: Spontaneous
  Country: DE (occurrence: DE)
  Receive Date: 20140212
  Receipt Date: 20140212
  Transmission Date: 20141002
  Serious: Yes (Other)
  Sender: FDA-Public Use
  Company Number: DE-ABBVIE-14P-062-1198744-00

PATIENT
  Sex: Female

DRUGS (1)
  1. HUMIRA [Suspect]
     Indication: RHEUMATOID ARTHRITIS
     Dosage: LONGER THAN EVERY OTHER WEEK
     Route: 058
     Dates: start: 20121204, end: 20140127

REACTIONS (1)
  - Carpal tunnel syndrome [Not Recovered/Not Resolved]
